FAERS Safety Report 25052837 (Version 1)
Quarter: 2025Q1

REPORT INFORMATION
  Report Type: Spontaneous
  Country: US (occurrence: US)
  Receive Date: 20250307
  Receipt Date: 20250307
  Transmission Date: 20250408
  Serious: No
  Sender: SANOFI AVENTIS
  Company Number: US-SA-2025SA064551

PATIENT
  Age: 52 Year
  Sex: Female
  Weight: 65.95 kg

DRUGS (1)
  1. KEVZARA [Suspect]
     Active Substance: SARILUMAB
     Indication: Rheumatoid arthritis
     Dosage: 1 DF, QOW
     Route: 058

REACTIONS (5)
  - Dysgeusia [Unknown]
  - Epistaxis [Unknown]
  - Back pain [Unknown]
  - Pulmonary mass [Unknown]
  - Peripheral swelling [Unknown]

NARRATIVE: CASE EVENT DATE: 20250201
